FAERS Safety Report 16154303 (Version 1)
Quarter: 2019Q2

REPORT INFORMATION
  Report Type: Spontaneous
  Country: US (occurrence: US)
  Receive Date: 20190403
  Receipt Date: 20190403
  Transmission Date: 20190711
  Serious: Yes (Hospitalization)
  Sender: FDA-Public Use
  Company Number: US-JNJFOC-20190335005

PATIENT
  Age: 21 Year
  Sex: Male

DRUGS (3)
  1. ACETAMINOPHEN EXTRA STRENGTH [Suspect]
     Active Substance: ACETAMINOPHEN
     Indication: COMPLETED SUICIDE
     Route: 048
     Dates: start: 20190316, end: 20190316
  2. BUPROPION. [Suspect]
     Active Substance: BUPROPION
     Indication: COMPLETED SUICIDE
     Dosage: SOME IN AMOUNT
     Route: 048
     Dates: start: 20180316
  3. PAXIL [Suspect]
     Active Substance: PAROXETINE HYDROCHLORIDE
     Indication: COMPLETED SUICIDE
     Route: 048
     Dates: start: 20190316

REACTIONS (4)
  - Seizure [Unknown]
  - Alanine aminotransferase increased [Not Recovered/Not Resolved]
  - Intentional overdose [Unknown]
  - Aspartate aminotransferase increased [Not Recovered/Not Resolved]

NARRATIVE: CASE EVENT DATE: 20190316
